FAERS Safety Report 7433431-6 (Version None)
Quarter: 2011Q2

REPORT INFORMATION
  Report Type: 
  Country: None (occurrence: None)
  Receive Date: 20110422
  Receipt Date: 20110415
  Transmission Date: 20111010
  Serious: No
  Sender: FDA-Public Use
  Company Number: US-B.I. PHARMACEUTICALS,INC./RIDGEFIELD-2011-BP-06917BP

PATIENT
  Age: 82 Year
  Sex: Female

DRUGS (5)
  1. LIPITOR [Concomitant]
     Indication: BLOOD CHOLESTEROL INCREASED
     Dates: start: 20060101
  2. SYNTHROID [Concomitant]
     Indication: HYPOTHYROIDISM
     Dates: start: 19450101
  3. PRADAXA [Suspect]
     Indication: ATRIAL FIBRILLATION
     Dosage: 300 MG
     Route: 048
     Dates: start: 20110209
  4. TYLENOL (CAPLET) [Concomitant]
     Indication: OSTEOARTHRITIS
     Dates: start: 20110101
  5. TOPROL-XL [Concomitant]
     Indication: HYPERTENSION
     Dates: start: 20060101

REACTIONS (2)
  - BACK PAIN [None]
  - SKIN DISCOLOURATION [None]
